FAERS Safety Report 8494590-X (Version None)
Quarter: 2012Q3

REPORT INFORMATION
  Report Type: 
  Country: None (occurrence: None)
  Receive Date: 20120709
  Receipt Date: 20120627
  Transmission Date: 20120928
  Serious: Yes (Hospitalization, Other)
  Sender: FDA-Public Use
  Company Number: CA-JNJFOC-20120614190

PATIENT
  Sex: Male
  Weight: 94 kg

DRUGS (10)
  1. BENADRYL [Concomitant]
     Route: 065
  2. RAMIPRIL [Concomitant]
     Route: 065
  3. SIMVASTATIN [Concomitant]
     Route: 065
  4. VITAMIN D [Concomitant]
     Route: 065
  5. OXYBUTYNIN [Concomitant]
     Route: 065
  6. METOPROLOL TARTRATE [Concomitant]
     Route: 065
  7. REMICADE [Suspect]
     Indication: CROHN'S DISEASE
     Route: 042
     Dates: start: 20030301
  8. OXYCONTIN [Concomitant]
     Route: 065
  9. PLAVIX [Concomitant]
     Route: 065
  10. ALENDRONATE SODIUM [Concomitant]
     Route: 065

REACTIONS (2)
  - INTESTINAL OBSTRUCTION [None]
  - MYOCARDIAL INFARCTION [None]
